FAERS Safety Report 15291481 (Version 1)
Quarter: 2018Q3

REPORT INFORMATION
  Report Type: Spontaneous
  Country: US (occurrence: US)
  Receive Date: 20180817
  Receipt Date: 20180817
  Transmission Date: 20181010
  Serious: No
  Sender: FDA-Public Use
  Company Number: US-PFIZER INC-2018330859

PATIENT
  Age: 77 Year
  Sex: Female
  Weight: 68.4 kg

DRUGS (4)
  1. IBRANCE [Suspect]
     Active Substance: PALBOCICLIB
     Dosage: UNK
  2. LETROZOLE. [Suspect]
     Active Substance: LETROZOLE
     Indication: BREAST CANCER
     Dosage: 2.5 MG, 1X/DAY
     Route: 048
  3. IBRANCE [Suspect]
     Active Substance: PALBOCICLIB
     Indication: BREAST CANCER
     Dosage: 100MG ONCE A DAY BY MOUTH
     Route: 048
     Dates: start: 201601
  4. WARFARIN [Concomitant]
     Active Substance: WARFARIN
     Indication: BLOOD VISCOSITY INCREASED
     Dosage: 7.5 MG, DAILY (ONCE A DAY)
     Route: 048

REACTIONS (2)
  - Burning sensation [Unknown]
  - Rash [Unknown]
